FAERS Safety Report 14298043 (Version 1)
Quarter: 2017Q4

REPORT INFORMATION
  Report Type: Spontaneous
  Country: US (occurrence: US)
  Receive Date: 20171218
  Receipt Date: 20171218
  Transmission Date: 20180321
  Serious: Yes (Other)
  Sender: FDA-Public Use
  Company Number: US-TEVA-2017-US-834185

PATIENT
  Age: 16 Year
  Sex: Female

DRUGS (3)
  1. LAMOTRIGINE. [Suspect]
     Active Substance: LAMOTRIGINE
  2. LAMOTRIGINE. [Suspect]
     Active Substance: LAMOTRIGINE
     Indication: EPILEPSY
     Dates: start: 2016
  3. DIVALPROEX ER [Concomitant]
     Active Substance: DIVALPROEX SODIUM

REACTIONS (11)
  - Somnolence [Unknown]
  - Petit mal epilepsy [Unknown]
  - Vomiting [Unknown]
  - Laziness [Unknown]
  - Hypophagia [Unknown]
  - Insomnia [Unknown]
  - Headache [Unknown]
  - Pain [Unknown]
  - Fluid intake reduced [Unknown]
  - Diplopia [Unknown]
  - Fatigue [Unknown]
